FAERS Safety Report 18527695 (Version 1)
Quarter: 2020Q4

REPORT INFORMATION
  Report Type: Spontaneous
  Country: US (occurrence: US)
  Receive Date: 20201120
  Receipt Date: 20201120
  Transmission Date: 20210114
  Serious: Yes (Other)
  Sender: FDA-Public Use
  Company Number: US-009507513-2011USA007915

PATIENT
  Age: 51 Year
  Sex: Female
  Weight: 45 kg

DRUGS (24)
  1. NEXIUM [Suspect]
     Active Substance: ESOMEPRAZOLE MAGNESIUM
     Dosage: 80 UNK
     Route: 048
  2. FOLIC ACID. [Concomitant]
     Active Substance: FOLIC ACID
     Indication: PRODUCT USED FOR UNKNOWN INDICATION
     Route: 065
  3. ZOFRAN [Concomitant]
     Active Substance: ONDANSETRON HYDROCHLORIDE
     Indication: PRODUCT USED FOR UNKNOWN INDICATION
     Route: 065
  4. LOVENOX [Concomitant]
     Active Substance: ENOXAPARIN SODIUM
     Indication: PRODUCT USED FOR UNKNOWN INDICATION
     Route: 065
  5. ATENOLOL. [Suspect]
     Active Substance: ATENOLOL
     Indication: BLOOD PRESSURE MEASUREMENT
     Dosage: 50 MG, 1X/DAY
     Route: 048
     Dates: start: 2003
  6. ALDACTONE [Concomitant]
     Active Substance: SPIRONOLACTONE
     Indication: PRODUCT USED FOR UNKNOWN INDICATION
     Route: 065
     Dates: start: 20130331
  7. FUROSEMIDE. [Concomitant]
     Active Substance: FUROSEMIDE
     Indication: PRODUCT USED FOR UNKNOWN INDICATION
     Route: 065
  8. PHENOBARBITAL. [Concomitant]
     Active Substance: PHENOBARBITAL
     Indication: SEIZURE
     Route: 065
     Dates: start: 1993
  9. VITAMIN D (UNSPECIFIED) [Concomitant]
     Active Substance: VITAMIN D NOS
     Indication: PRODUCT USED FOR UNKNOWN INDICATION
     Route: 065
  10. THIAMINE. [Concomitant]
     Active Substance: THIAMINE
     Indication: PRODUCT USED FOR UNKNOWN INDICATION
     Route: 065
  11. NEXIUM [Suspect]
     Active Substance: ESOMEPRAZOLE MAGNESIUM
     Indication: GASTROOESOPHAGEAL REFLUX DISEASE
     Dosage: 40 MG, 2X/DAY
     Route: 048
     Dates: start: 2008
  12. XANAX [Concomitant]
     Active Substance: ALPRAZOLAM
     Indication: PRODUCT USED FOR UNKNOWN INDICATION
     Route: 065
  13. VITAMINS (UNSPECIFIED) [Concomitant]
     Active Substance: VITAMINS
     Indication: PRODUCT USED FOR UNKNOWN INDICATION
     Route: 065
  14. CHOLECALCIFEROL [Concomitant]
     Active Substance: CHOLECALCIFEROL
     Indication: PRODUCT USED FOR UNKNOWN INDICATION
     Route: 065
  15. POTASSIUM CHLORIDE. [Concomitant]
     Active Substance: POTASSIUM CHLORIDE
     Indication: PRODUCT USED FOR UNKNOWN INDICATION
     Route: 065
  16. DOXYCYCLINE. [Concomitant]
     Active Substance: DOXYCYCLINE
     Indication: PRODUCT USED FOR UNKNOWN INDICATION
     Route: 065
  17. ACIPHEX [Concomitant]
     Active Substance: RABEPRAZOLE SODIUM
     Indication: PRODUCT USED FOR UNKNOWN INDICATION
     Route: 065
  18. PRINIVIL [Suspect]
     Active Substance: LISINOPRIL
     Indication: BLOOD PRESSURE INCREASED
     Dosage: 10 MG, DAILY
     Route: 048
     Dates: start: 2009
  19. LOMOTIL [Concomitant]
     Active Substance: ATROPINE SULFATE\DIPHENOXYLATE HYDROCHLORIDE
     Indication: PRODUCT USED FOR UNKNOWN INDICATION
     Route: 065
  20. CYANOCOBALAMIN. [Concomitant]
     Active Substance: CYANOCOBALAMIN
     Indication: PRODUCT USED FOR UNKNOWN INDICATION
     Route: 065
  21. ASCORBIC ACID. [Concomitant]
     Active Substance: ASCORBIC ACID
     Indication: PRODUCT USED FOR UNKNOWN INDICATION
     Route: 065
  22. TRAZODONE HYDROCHLORIDE. [Concomitant]
     Active Substance: TRAZODONE HYDROCHLORIDE
     Indication: PRODUCT USED FOR UNKNOWN INDICATION
     Route: 065
  23. ACETAMINOPHEN (+) HYDROCODONE BITARTRATE [Concomitant]
     Active Substance: ACETAMINOPHEN\HYDROCODONE BITARTRATE
     Indication: PRODUCT USED FOR UNKNOWN INDICATION
     Route: 065
  24. BONIVA [Concomitant]
     Active Substance: IBANDRONATE SODIUM
     Indication: PRODUCT USED FOR UNKNOWN INDICATION
     Route: 065

REACTIONS (79)
  - Non-cardiac chest pain [Unknown]
  - Supraventricular tachycardia [Unknown]
  - Disturbance in attention [Unknown]
  - Oedema peripheral [Unknown]
  - Malnutrition [Unknown]
  - Chills [Unknown]
  - Dysphagia [Unknown]
  - Weight decreased [Unknown]
  - Osteoarthritis [Unknown]
  - Loss of consciousness [Unknown]
  - Borderline glaucoma [Unknown]
  - Fluid retention [Not Recovered/Not Resolved]
  - Hyperlipidaemia [Unknown]
  - Electrocardiogram abnormal [Unknown]
  - Joint dislocation [Unknown]
  - Vomiting [Unknown]
  - Prinzmetal angina [Unknown]
  - Road traffic accident [Unknown]
  - Bronchitis [Unknown]
  - Umbilical hernia [Unknown]
  - Ehlers-Danlos syndrome [Unknown]
  - Haematochezia [Unknown]
  - Pancreatitis acute [Unknown]
  - Drug abuse [Unknown]
  - Cervical spinal stenosis [Unknown]
  - Leukopenia [Unknown]
  - Spinal osteoarthritis [Unknown]
  - Hypertension [Unknown]
  - Nausea [Unknown]
  - Spinal osteoarthritis [Unknown]
  - Rectocele [Unknown]
  - Blood magnesium decreased [Recovering/Resolving]
  - Osteoporosis [Unknown]
  - Chest pain [Unknown]
  - Gastrooesophageal reflux disease [Recovering/Resolving]
  - Jaw fracture [Unknown]
  - Long QT syndrome [Unknown]
  - Cellulitis staphylococcal [Unknown]
  - Urinary incontinence [Unknown]
  - Essential hypertension [Unknown]
  - Dyspepsia [Unknown]
  - Myofascial pain syndrome [Unknown]
  - Femoral neck fracture [Unknown]
  - Neuralgia [Unknown]
  - Cystitis [Unknown]
  - Anxiety [Unknown]
  - Humerus fracture [Unknown]
  - Hypoaesthesia [Unknown]
  - Pain [Unknown]
  - Myocardial infarction [Recovering/Resolving]
  - Headache [Unknown]
  - Alcoholism [Unknown]
  - Deep vein thrombosis [Unknown]
  - Incisional hernia [Unknown]
  - Cardiac failure congestive [Not Recovered/Not Resolved]
  - Compression fracture [Unknown]
  - Blood disorder [Unknown]
  - Myelopathy [Unknown]
  - Inguinal hernia [Unknown]
  - Off label use [Unknown]
  - Anaemia [Unknown]
  - Mitral valve prolapse [Unknown]
  - Antiphospholipid syndrome [Unknown]
  - Abdominal hernia [Unknown]
  - Stillbirth [Unknown]
  - Postoperative wound infection [Unknown]
  - Fall [Unknown]
  - Hyperparathyroidism [Unknown]
  - Cardiomegaly [Unknown]
  - Staphylococcal infection [Unknown]
  - Ventricular extrasystoles [Unknown]
  - Neck pain [Unknown]
  - Deep vein thrombosis [Unknown]
  - Raynaud^s phenomenon [Unknown]
  - Liver function test abnormal [Unknown]
  - Arthralgia [Unknown]
  - Blood alkaline phosphatase increased [Unknown]
  - Bipolar I disorder [Unknown]
  - Abortion spontaneous [Unknown]

NARRATIVE: CASE EVENT DATE: 20020417
